FAERS Safety Report 4548239-9 (Version None)
Quarter: 2005Q1

REPORT INFORMATION
  Report Type: 
  Country: None (occurrence: None)
  Receive Date: 20050105
  Receipt Date: 20050105
  Transmission Date: 20050727
  Serious: Yes (Hospitalization, Other)
  Sender: FDA-Public Use
  Company Number: None

PATIENT
  Sex: Male
  Weight: 90.7194 kg

DRUGS (1)
  1. STERAPRED 10 MG KIT    MERZ PHARM [Suspect]
     Indication: ROTATOR CUFF SYNDROME
     Dosage: 12 DAYS - INCREASE AND DECREASE DOSE
     Dates: start: 19970101

REACTIONS (3)
  - CATARACT CONGENITAL [None]
  - GLARE [None]
  - VISION BLURRED [None]
